FAERS Safety Report 19992520 (Version 2)
Quarter: 2021Q4

REPORT INFORMATION
  Report Type: Spontaneous
  Country: DE (occurrence: DE)
  Receive Date: 20211025
  Receipt Date: 20211126
  Transmission Date: 20220304
  Serious: Yes (Hospitalization, Other)
  Sender: FDA-Public Use
  Company Number: DE-OTSUKA-2021_036464

PATIENT
  Age: 23 Year
  Sex: Male

DRUGS (6)
  1. ABILIFY [Suspect]
     Active Substance: ARIPIPRAZOLE
     Indication: Schizophrenia
     Dosage: 10 MG
     Route: 065
     Dates: start: 20210315, end: 20210426
  2. ABILIFY [Suspect]
     Active Substance: ARIPIPRAZOLE
     Dosage: 5 MG
     Route: 065
     Dates: start: 20210427, end: 20210430
  3. FOLIC ACID [Concomitant]
     Active Substance: FOLIC ACID
     Indication: Product used for unknown indication
     Dosage: 5 MG
     Route: 065
     Dates: start: 20210228, end: 20210417
  4. CHOLECALCIFEROL [Concomitant]
     Active Substance: CHOLECALCIFEROL
     Indication: Product used for unknown indication
     Dosage: 1000 MG
     Route: 065
     Dates: start: 20210228, end: 20210417
  5. DIAZEPAM [Concomitant]
     Active Substance: DIAZEPAM
     Indication: Product used for unknown indication
     Dosage: 5 MG (STARTED SINCE A LONG TIME)
     Route: 065
     Dates: end: 20210315
  6. PLANTAGO AFRA SEED [Concomitant]
     Active Substance: PLANTAGO AFRA SEED
     Indication: Product used for unknown indication
     Dosage: 1 SACHET, ORANGE
     Route: 065
     Dates: start: 20210228, end: 20210331

REACTIONS (5)
  - Chills [Recovered/Resolved]
  - Gait disturbance [Recovered/Resolved]
  - Parkinsonism [Recovered/Resolved]
  - Tremor [Recovered/Resolved]
  - Hypokinesia [Unknown]

NARRATIVE: CASE EVENT DATE: 20210316
